FAERS Safety Report 5018366-0 (Version None)
Quarter: 2006Q2

REPORT INFORMATION
  Report Type: 
  Country: None (occurrence: None)
  Receive Date: 20060530
  Receipt Date: 20050610
  Transmission Date: 20061013
  Serious: Yes (Other)
  Sender: FDA-Public Use
  Company Number: 2005088953

PATIENT
  Age: 69 Year
  Sex: Female
  Weight: 52 kg

DRUGS (3)
  1. LYRICA [Suspect]
     Indication: GUILLAIN-BARRE SYNDROME
     Dosage: 150 MG, ORAL
     Route: 048
     Dates: start: 20050418, end: 20050524
  2. DIPYRONE TAB [Concomitant]
  3. MIRTAZAPINE [Concomitant]

REACTIONS (1)
  - GAMMA-GLUTAMYLTRANSFERASE INCREASED [None]
